FAERS Safety Report 11394589 (Version 1)
Quarter: 2015Q3

REPORT INFORMATION
  Report Type: Spontaneous
  Country: US (occurrence: US)
  Receive Date: 20150819
  Receipt Date: 20150819
  Transmission Date: 20151125
  Serious: Yes (Other)
  Sender: FDA-Public Use
  Company Number: US-TEVA-587269ACC

PATIENT
  Age: 30 Year
  Sex: Female
  Weight: 53.57 kg

DRUGS (1)
  1. PARAGARD T 380A [Suspect]
     Active Substance: COPPER
     Indication: CONTRACEPTION
     Route: 015
     Dates: start: 20150807, end: 20150807

REACTIONS (3)
  - Complication of device insertion [Unknown]
  - Pain [Unknown]
  - Device dislocation [Unknown]

NARRATIVE: CASE EVENT DATE: 20150807
